FAERS Safety Report 6120617-6 (Version None)
Quarter: 2009Q1

REPORT INFORMATION
  Report Type: 
  Country: None (occurrence: None)
  Receive Date: 20090312
  Receipt Date: 20090312
  Transmission Date: 20090719
  Serious: Yes (Hospitalization)
  Sender: FDA-Public Use
  Company Number: None

PATIENT
  Age: 52 Year
  Sex: Male
  Weight: 93.441 kg

DRUGS (17)
  1. CAPECITABINE [Suspect]
     Indication: PANCREATIC CARCINOMA METASTATIC
     Dosage: 500 MG TABLET, 4 TABLET TWICE DAILY, ORALLY
     Route: 048
     Dates: start: 20090218, end: 20090303
  2. AMYLASE-LIPASE-PROTEASE [Concomitant]
  3. ANAGRELIDE HCL [Concomitant]
  4. CAPECITABINE [Concomitant]
  5. HYDROCHLOROTHIAZIDE [Concomitant]
  6. HYDROMORPHONE HCL [Concomitant]
  7. INSULIN GLARGINE [Concomitant]
  8. INSULIN LISPRO [Concomitant]
  9. LORAZEPAM [Concomitant]
  10. MORPHINE [Concomitant]
  11. OMEPRAZOLE [Concomitant]
  12. ONDANSETRON HC1 [Concomitant]
  13. PROCHLORPERAZINE MALEATE [Concomitant]
  14. SIMVASTATIN [Concomitant]
  15. TEMAZEPAM [Concomitant]
  16. VERAPAMIL [Concomitant]
  17. HEXAVITAMIN [Concomitant]

REACTIONS (4)
  - ABDOMINAL DISCOMFORT [None]
  - DIARRHOEA [None]
  - NAUSEA [None]
  - VOMITING [None]
